FAERS Safety Report 10083289 (Version 1)
Quarter: 2014Q2

REPORT INFORMATION
  Report Type: Spontaneous
  Country: US (occurrence: None)
  Receive Date: 20140415
  Receipt Date: 20140415
  Transmission Date: 20141212
  Serious: Yes (Other)
  Sender: FDA-Public Use
  Company Number: 152960

PATIENT
  Age: 55 Year
  Sex: 0

DRUGS (1)
  1. ADRIAMYCIN [Suspect]
     Route: 042
     Dates: start: 20130113

REACTIONS (2)
  - Pancytopenia [None]
  - Pyrexia [None]
